FAERS Safety Report 9918032 (Version 2)
Quarter: 2014Q1

REPORT INFORMATION
  Report Type: Spontaneous
  Country: US (occurrence: US)
  Receive Date: 20140222
  Receipt Date: 20140305
  Transmission Date: 20141002
  Serious: No
  Sender: FDA-Public Use
  Company Number: US-009507513-1402USA008082

PATIENT
  Sex: Female

DRUGS (3)
  1. OXYTROL FOR WOMEN [Suspect]
     Indication: POLLAKIURIA
     Dosage: 1 DF, Q4D
     Route: 062
     Dates: start: 201311
  2. OXYTROL FOR WOMEN [Suspect]
     Indication: NOCTURIA
  3. OXYTROL FOR WOMEN [Suspect]
     Indication: POLLAKIURIA

REACTIONS (2)
  - Drug effect decreased [Unknown]
  - Product quality issue [Unknown]
